FAERS Safety Report 10230767 (Version 12)
Quarter: 2018Q2

REPORT INFORMATION
  Report Type: Report from Study
  Country: US (occurrence: US)
  Receive Date: 20140611
  Receipt Date: 20180516
  Transmission Date: 20180711
  Serious: Yes (Hospitalization, Other)
  Sender: FDA-Public Use
  Company Number: US-SA-2014SA045231

PATIENT
  Age: 60 Year
  Sex: Female

DRUGS (2)
  1. AUBAGIO [Suspect]
     Active Substance: TERIFLUNOMIDE
     Indication: MULTIPLE SCLEROSIS
     Route: 048
     Dates: start: 20140402
  2. GILENYA [Concomitant]
     Active Substance: FINGOLIMOD HYDROCHLORIDE

REACTIONS (36)
  - Multiple sclerosis relapse [Unknown]
  - Dyspnoea [Unknown]
  - Blood potassium decreased [Unknown]
  - Arthritis [Unknown]
  - Computerised tomogram abnormal [Unknown]
  - Arthralgia [Unknown]
  - Intervertebral disc degeneration [Unknown]
  - Walking aid user [Unknown]
  - Fall [Unknown]
  - Weight decreased [Unknown]
  - Amnesia [Not Recovered/Not Resolved]
  - Cyst [Recovered/Resolved]
  - Chronic kidney disease [Recovered/Resolved]
  - Diarrhoea [Unknown]
  - Mouth breathing [Unknown]
  - Hepatic enzyme increased [Recovered/Resolved]
  - Unevaluable event [Unknown]
  - Throat irritation [Unknown]
  - Intervertebral disc protrusion [Unknown]
  - Sensory loss [Unknown]
  - Hypoaesthesia [Unknown]
  - Memory impairment [Unknown]
  - Nausea [Unknown]
  - Social avoidant behaviour [Unknown]
  - Influenza [Recovered/Resolved]
  - Panic attack [Recovered/Resolved]
  - Muscular weakness [Unknown]
  - Rectal prolapse [Unknown]
  - Laboratory test abnormal [Recovered/Resolved]
  - Multiple sclerosis [Unknown]
  - Burning sensation [Unknown]
  - Tongue discomfort [Not Recovered/Not Resolved]
  - Nasal septum deviation [Recovered/Resolved]
  - Dry mouth [Unknown]
  - Burning mouth syndrome [Unknown]
  - Hypoaesthesia oral [Not Recovered/Not Resolved]

NARRATIVE: CASE EVENT DATE: 20140404
